FAERS Safety Report 12744931 (Version 3)
Quarter: 2016Q4

REPORT INFORMATION
  Report Type: Report from Study
  Country: US (occurrence: US)
  Receive Date: 20160915
  Receipt Date: 20161206
  Transmission Date: 20170207
  Serious: Yes (Hospitalization)
  Sender: FDA-Public Use
  Company Number: US-ROCHE-1826583

PATIENT
  Age: 80 Year
  Sex: Male
  Weight: 98.52 kg

DRUGS (1)
  1. ATEZOLIZUMAB [Suspect]
     Active Substance: ATEZOLIZUMAB
     Indication: LUNG ADENOCARCINOMA
     Dosage: CYCLE 5 14/OCT/2016
     Route: 042
     Dates: start: 20160714

REACTIONS (5)
  - Lung infection [Unknown]
  - Asthenia [Unknown]
  - Vomiting [Unknown]
  - Sepsis [Unknown]
  - Pyrexia [Unknown]

NARRATIVE: CASE EVENT DATE: 20160727
